FAERS Safety Report 14461260 (Version 2)
Quarter: 2018Q1

REPORT INFORMATION
  Report Type: Spontaneous
  Country: US (occurrence: US)
  Receive Date: 20180130
  Receipt Date: 20180213
  Transmission Date: 20180509
  Serious: No
  Sender: FDA-Public Use
  Company Number: US-TEVA-2018-US-848371

PATIENT
  Sex: Female

DRUGS (1)
  1. FENTORA [Suspect]
     Active Substance: FENTANYL CITRATE
     Indication: PAIN
     Route: 065

REACTIONS (9)
  - Influenza like illness [Recovered/Resolved]
  - Fatigue [Unknown]
  - Inappropriate schedule of drug administration [Unknown]
  - Tremor [Unknown]
  - Drug ineffective [Unknown]
  - Insomnia [Unknown]
  - Anxiety [Unknown]
  - Rapid eye movements sleep abnormal [Unknown]
  - Skin disorder [Unknown]
